FAERS Safety Report 4349245-X (Version None)
Quarter: 2004Q2

REPORT INFORMATION
  Report Type: 
  Country: None (occurrence: None)
  Receive Date: 20040428
  Receipt Date: 20040409
  Transmission Date: 20050107
  Serious: Yes (Life-Threatening)
  Sender: FDA-Public Use
  Company Number: US-MERCK-0404USA01135

PATIENT
  Age: 81 Year
  Sex: Male

DRUGS (3)
  1. PROSCAR [Suspect]
     Indication: BENIGN PROSTATIC HYPERPLASIA
     Route: 048
     Dates: start: 19990101
  2. ZESTORETIC [Concomitant]
     Indication: CARDIAC DISORDER
     Route: 065
  3. COUMADIN [Concomitant]
     Route: 065
     Dates: start: 19990101

REACTIONS (1)
  - PROSTATE CANCER [None]
